FAERS Safety Report 10072789 (Version 1)
Quarter: 2014Q2

REPORT INFORMATION
  Report Type: Spontaneous
  Country: MX (occurrence: MX)
  Receive Date: 20140411
  Receipt Date: 20140411
  Transmission Date: 20141212
  Serious: Yes (Other)
  Sender: FDA-Public Use
  Company Number: MX-AMGEN-MEXSP2014025658

PATIENT
  Age: 67 Year
  Sex: Female

DRUGS (1)
  1. VECTIBIX [Suspect]
     Indication: PRODUCT USED FOR UNKNOWN INDICATION
     Dosage: 400 MG, EACH 15 DAYS
     Route: 065
     Dates: start: 201312, end: 20140217

REACTIONS (3)
  - Upper limb fracture [Unknown]
  - Neuropathy peripheral [Not Recovered/Not Resolved]
  - Fall [Unknown]
